FAERS Safety Report 4400559-4 (Version None)
Quarter: 2004Q3

REPORT INFORMATION
  Report Type: 
  Country: None (occurrence: None)
  Receive Date: 20040716
  Receipt Date: 20040716
  Transmission Date: 20050211
  Serious: No
  Sender: FDA-Public Use
  Company Number: None

PATIENT
  Age: 48 Year
  Sex: Male
  Weight: 104.3273 kg

DRUGS (2)
  1. LEVAQUIN [Suspect]
     Indication: PNEUMONIA
     Dosage: QD ORAL
     Route: 048
     Dates: start: 20040623, end: 20040702
  2. MEDROL [Concomitant]

REACTIONS (2)
  - TENDON INJURY [None]
  - TENDON RUPTURE [None]
